FAERS Safety Report 6421968-8 (Version None)
Quarter: 2009Q4

REPORT INFORMATION
  Report Type: 
  Country: None (occurrence: None)
  Receive Date: 20091029
  Receipt Date: 20091029
  Transmission Date: 20100525
  Serious: Yes (Life-Threatening, Hospitalization)
  Sender: FDA-Public Use
  Company Number: None

PATIENT
  Age: 56 Year
  Sex: Male
  Weight: 62.87 kg

DRUGS (1)
  1. LEPIRUDIN [Suspect]
     Indication: DEEP VEIN THROMBOSIS
     Dosage: 100 MG EVERY DAY IV
     Route: 042
     Dates: start: 20090824, end: 20090830

REACTIONS (1)
  - THROMBOCYTOPENIA [None]
